FAERS Safety Report 8183461-4 (Version None)
Quarter: 2012Q1

REPORT INFORMATION
  Report Type: 
  Country: None (occurrence: None)
  Receive Date: 20120305
  Receipt Date: 20120224
  Transmission Date: 20120608
  Serious: Yes (Hospitalization)
  Sender: FDA-Public Use
  Company Number: US-BAYER-2011-046700

PATIENT
  Age: 20 Year
  Sex: Female
  Weight: 109 kg

DRUGS (5)
  1. YAZ [Suspect]
     Indication: PREMENSTRUAL SYNDROME
  2. DOC-Q-LACE [Concomitant]
  3. GARDASIL [Concomitant]
  4. YAZ [Suspect]
     Indication: CONTRACEPTION
     Dosage: UNK
     Dates: start: 20070921, end: 20080529
  5. OXYCODONE HCL [Concomitant]

REACTIONS (8)
  - CONTUSION [None]
  - DYSPNOEA [None]
  - FEAR OF DISEASE [None]
  - NECK PAIN [None]
  - PULMONARY EMBOLISM [None]
  - MUSCULOSKELETAL PAIN [None]
  - EMOTIONAL DISTRESS [None]
  - QUALITY OF LIFE DECREASED [None]
